FAERS Safety Report 8185344-2 (Version None)
Quarter: 2012Q1

REPORT INFORMATION
  Report Type: 
  Country: None (occurrence: None)
  Receive Date: 20120305
  Receipt Date: 20120228
  Transmission Date: 20120608
  Serious: Yes (Other)
  Sender: FDA-Public Use
  Company Number: PHHY2012CA018086

PATIENT
  Sex: Female

DRUGS (1)
  1. ZOLEDRONOC ACID [Suspect]
     Dosage: 5 MG, UNK
     Route: 042
     Dates: start: 20110101

REACTIONS (4)
  - GLOMERULAR FILTRATION RATE DECREASED [None]
  - BLOOD CREATINE INCREASED [None]
  - ARTHRALGIA [None]
  - MYALGIA [None]
